FAERS Safety Report 7055613-8 (Version None)
Quarter: 2010Q4

REPORT INFORMATION
  Report Type: 
  Country: None (occurrence: None)
  Receive Date: 20101021
  Receipt Date: 20101015
  Transmission Date: 20110411
  Serious: Yes (Other)
  Sender: FDA-Public Use
  Company Number: US-BRISTOL-MYERS SQUIBB COMPANY-15185218

PATIENT
  Age: 73 Year
  Sex: Female
  Weight: 114 kg

DRUGS (21)
  1. DASATINIB [Suspect]
     Indication: BREAST CANCER
     Dosage: INTERRUPTED ON 7JUL10 CYC:6
     Route: 048
     Dates: start: 20100624
  2. FULVESTRANT [Suspect]
     Indication: BREAST CANCER
     Dosage: INTERRUPTED ON 7JUL10
     Route: 030
     Dates: start: 20100624
  3. OSCAL D [Concomitant]
     Indication: MINERAL SUPPLEMENTATION
     Route: 048
     Dates: start: 20070420
  4. VITAMIN D [Concomitant]
     Indication: VITAMIN SUPPLEMENTATION
     Dosage: 1DF=50000 UNITS
     Route: 048
     Dates: start: 20080918
  5. MULTI-VITAMIN [Concomitant]
     Indication: VITAMIN SUPPLEMENTATION
     Dosage: 1DF:1TAB
     Route: 048
     Dates: start: 20080117
  6. COMPAZINE [Concomitant]
     Indication: NAUSEA
     Dosage: Q6H
     Route: 048
     Dates: start: 20070420
  7. ACETAMINOPHEN [Concomitant]
     Indication: PAIN
     Dosage: Q46H
     Route: 048
     Dates: start: 20071129
  8. ACETAMINOPHEN [Concomitant]
     Indication: PYREXIA
     Dosage: Q46H
     Route: 048
     Dates: start: 20071129
  9. CARBIDOPA [Concomitant]
     Indication: PARKINSON'S DISEASE
     Dosage: 1DF:25:100 MG
     Route: 048
     Dates: start: 20070420
  10. ENULOSE [Concomitant]
     Indication: CONSTIPATION
     Dosage: PRN
     Route: 048
     Dates: start: 20080117
  11. DARVOCET-N 100 [Concomitant]
     Indication: PAIN
     Dosage: 1DF:100:650MG Q4H
     Route: 048
     Dates: start: 20071129
  12. MOTRIN [Concomitant]
     Indication: PAIN
     Dosage: Q8H
     Route: 048
     Dates: start: 20070228
  13. JANUVIA [Concomitant]
     Indication: DIABETES MELLITUS
     Route: 048
     Dates: start: 20080117
  14. CELEBREX [Concomitant]
     Indication: PAIN
     Route: 048
     Dates: start: 20100415
  15. NEXIUM [Concomitant]
     Indication: GASTROOESOPHAGEAL REFLUX DISEASE
     Route: 048
     Dates: start: 20080918
  16. CYMBALTA [Concomitant]
     Indication: DEPRESSION
     Route: 048
     Dates: start: 20070531
  17. ALLEGRA [Concomitant]
     Indication: HYPERSENSITIVITY
     Route: 048
     Dates: start: 20080918
  18. REGLAN [Concomitant]
     Indication: NAUSEA
     Dosage: Q 6 HOURS
     Route: 048
     Dates: start: 20071129
  19. DURAGESIC-100 [Concomitant]
     Indication: PAIN
     Dosage: DURAGESIC TOP
     Route: 061
     Dates: start: 20080117
  20. XANAX [Concomitant]
     Indication: ANXIETY
     Dosage: PRN
     Route: 048
     Dates: start: 20070420
  21. DILAUDID [Concomitant]
     Indication: PAIN
     Dosage: Q3-4 HRS PRN
     Route: 048
     Dates: start: 20080117

REACTIONS (7)
  - ANGINA PECTORIS [None]
  - ASTHENIA [None]
  - CHRONIC OBSTRUCTIVE PULMONARY DISEASE [None]
  - DYSPNOEA [None]
  - LOSS OF CONSCIOUSNESS [None]
  - PNEUMONIA [None]
  - PRODUCTIVE COUGH [None]
